FAERS Safety Report 20848131 (Version 2)
Quarter: 2022Q2

REPORT INFORMATION
  Report Type: Spontaneous
  Country: US (occurrence: US)
  Receive Date: 20220519
  Receipt Date: 20220617
  Transmission Date: 20220720
  Serious: No
  Sender: FDA-Public Use
  Company Number: US-BRISTOL-MYERS SQUIBB COMPANY-2022-019638

PATIENT
  Age: 62 Year
  Sex: Female

DRUGS (4)
  1. ORENCIA [Suspect]
     Active Substance: ABATACEPT
     Indication: Rheumatoid arthritis
     Dosage: STRENGTH: 250MG/VL?ONGOING?BATCH NUMBER: ACD5597, EXPIRY DATE: 31-OCT-2024
     Route: 042
     Dates: start: 20190521
  2. ORENCIA [Suspect]
     Active Substance: ABATACEPT
     Indication: Polyneuropathy
  3. ORENCIA [Suspect]
     Active Substance: ABATACEPT
     Indication: Quadriplegia
  4. GAMMAGARD [Suspect]
     Active Substance: HUMAN IMMUNOGLOBULIN G
     Indication: Product used for unknown indication
     Route: 065

REACTIONS (1)
  - Headache [Unknown]
